FAERS Safety Report 9226153 (Version 1)
Quarter: 2013Q2

REPORT INFORMATION
  Report Type: Spontaneous
  Country: US (occurrence: US)
  Receive Date: 20130411
  Receipt Date: 20130411
  Transmission Date: 20140414
  Serious: No
  Sender: FDA-Public Use
  Company Number: US-PFIZER INC-2013113818

PATIENT
  Age: 53 Year
  Sex: 0

DRUGS (3)
  1. GABAPENTIN [Suspect]
     Dosage: UNK
  2. METHOCARBAMOL [Suspect]
     Dosage: UNK
  3. BACLOFEN [Suspect]
     Dosage: UNK

REACTIONS (2)
  - Drug hypersensitivity [Unknown]
  - Dizziness [Unknown]
